FAERS Safety Report 21631587 (Version 1)
Quarter: 2022Q4

REPORT INFORMATION
  Report Type: Spontaneous
  Country: US (occurrence: US)
  Receive Date: 20221123
  Receipt Date: 20221123
  Transmission Date: 20230113
  Serious: No
  Sender: FDA-Public Use
  Company Number: US-APOTEX-2022AP014061

PATIENT
  Age: 31 Year
  Sex: Male

DRUGS (8)
  1. ARIPIPRAZOLE [Suspect]
     Active Substance: ARIPIPRAZOLE
     Indication: Psychotic disorder
     Dosage: UNK
     Route: 065
  2. ARIPIPRAZOLE [Suspect]
     Active Substance: ARIPIPRAZOLE
     Indication: Hallucination, auditory
  3. OLANZAPINE [Suspect]
     Active Substance: OLANZAPINE
     Indication: Psychotic disorder
     Dosage: 10 MILLIGRAM, DAILY
     Route: 065
  4. OLANZAPINE [Suspect]
     Active Substance: OLANZAPINE
     Indication: Hallucination, auditory
  5. RISPERIDONE [Concomitant]
     Active Substance: RISPERIDONE
     Indication: Psychotic disorder
     Dosage: 4 MILLIGRAM, QD
     Route: 065
  6. RISPERIDONE [Concomitant]
     Active Substance: RISPERIDONE
     Indication: Hallucination, auditory
  7. LITHIUM [Concomitant]
     Active Substance: LITHIUM
     Indication: Psychotic disorder
     Dosage: 900 MILLIGRAM, QD, DAILY
     Route: 065
  8. LITHIUM [Concomitant]
     Active Substance: LITHIUM
     Indication: Hallucination, auditory

REACTIONS (2)
  - Abdominal discomfort [Unknown]
  - Sedation [Unknown]
